FAERS Safety Report 8537370-9 (Version None)
Quarter: 2012Q3

REPORT INFORMATION
  Report Type: 
  Country: None (occurrence: None)
  Receive Date: 20120725
  Receipt Date: 20120719
  Transmission Date: 20120928
  Serious: Yes (Other)
  Sender: FDA-Public Use
  Company Number: BR-ROCHE-1090034

PATIENT
  Sex: Female
  Weight: 64 kg

DRUGS (7)
  1. ACETAMINOPHEN [Concomitant]
     Indication: PREMEDICATION
  2. HYDROCORTISONE [Concomitant]
     Indication: PREMEDICATION
  3. NIMESULIDE [Concomitant]
  4. MABTHERA [Suspect]
     Indication: RHEUMATOID ARTHRITIS
     Dates: start: 20100801, end: 20120628
  5. FOLIC ACID [Concomitant]
  6. METHOTREXATE [Concomitant]
  7. PREDNISONE [Concomitant]

REACTIONS (4)
  - THROAT IRRITATION [None]
  - RASH [None]
  - ARTHRALGIA [None]
  - CYANOSIS [None]
